FAERS Safety Report 7335168-0 (Version None)
Quarter: 2011Q1

REPORT INFORMATION
  Report Type: 
  Country: None (occurrence: None)
  Receive Date: 20110307
  Receipt Date: 20110228
  Transmission Date: 20110831
  Serious: Yes (Hospitalization, Other)
  Sender: FDA-Public Use
  Company Number: US-JNJFOC-20100806039

PATIENT
  Sex: Female

DRUGS (2)
  1. LEVAQUIN [Suspect]
     Indication: UPPER RESPIRATORY TRACT INFECTION
     Route: 048
  2. LEVAQUIN [Suspect]
     Indication: INFECTION
     Route: 048

REACTIONS (7)
  - JOINT INJURY [None]
  - ROTATOR CUFF SYNDROME [None]
  - PERIARTHRITIS [None]
  - TENDON DISORDER [None]
  - LIMB INJURY [None]
  - DEPRESSION [None]
  - TENDON RUPTURE [None]
